FAERS Safety Report 8765473 (Version 1)
Quarter: 2012Q4

REPORT INFORMATION
  Report Type: 
  Country: US (occurrence: US)
  Receive Date: 20120831
  Receipt Date: 20120831
  Transmission Date: 20130627
  Serious: Yes (Other)
  Sender: FDA-Public Use
  Company Number: US-PFIZER INC-2012212596

PATIENT
  Age: 71 Year
  Sex: Female
  Weight: 97.51 kg

DRUGS (8)
  1. REVATIO [Suspect]
     Indication: PULMONARY HYPERTENSION
     Dosage: 20 mg, 3x/day
     Route: 048
  2. REVATIO [Suspect]
     Dosage: 40 mg, 3x/day
     Route: 048
     Dates: start: 2012
  3. LASIX [Concomitant]
     Indication: FLUID RETENTION
     Dosage: 40 mg, 1x/day
  4. LOSARTAN [Concomitant]
     Indication: HYPERTENSION
     Dosage: 50 mg, 1x/day
     Dates: start: 2011
  5. LEVOXYL [Concomitant]
     Indication: THYROID DISORDER
     Dosage: 150 ug, 1x/day
     Route: 048
  6. COMBIVENT [Concomitant]
     Indication: DYSPNOEA
     Dosage: UNK, 2x/day
  7. VITAMIN D [Concomitant]
     Dosage: UNK
  8. IRON [Concomitant]
     Dosage: UNK

REACTIONS (2)
  - Cardiac disorder [Unknown]
  - Diarrhoea [Recovered/Resolved]
